FAERS Safety Report 13666376 (Version 1)
Quarter: 2017Q2

REPORT INFORMATION
  Report Type: Spontaneous
  Country: US (occurrence: US)
  Receive Date: 20170619
  Receipt Date: 20170619
  Transmission Date: 20170830
  Serious: No
  Sender: FDA-Public Use
  Company Number: US-ROCHE-1548808

PATIENT
  Sex: Female

DRUGS (2)
  1. XELODA [Suspect]
     Active Substance: CAPECITABINE
     Indication: PRODUCT USED FOR UNKNOWN INDICATION
     Dosage: 7 ON 7 OFF
     Route: 048
     Dates: start: 20131231
  2. XELODA [Suspect]
     Active Substance: CAPECITABINE
     Dosage: 7 DAYS ON THEN 7 DAYS OFF
     Route: 048
     Dates: start: 20141108

REACTIONS (3)
  - Viral upper respiratory tract infection [Unknown]
  - Nausea [Unknown]
  - Bone pain [Unknown]
